FAERS Safety Report 16198703 (Version 2)
Quarter: 2020Q1

REPORT INFORMATION
  Report Type: Spontaneous
  Country: GB (occurrence: GB)
  Receive Date: 20190415
  Receipt Date: 20200206
  Transmission Date: 20200409
  Serious: Yes (Other)
  Sender: FDA-Public Use
  Company Number: GB-PFIZER INC-2019152752

PATIENT
  Age: 2 Day
  Sex: Female

DRUGS (7)
  1. TRAMADOL HYDROCHLORIDE. [Concomitant]
     Active Substance: TRAMADOL HYDROCHLORIDE
     Dosage: UNK
     Route: 063
  2. BENZYLPENICILLIN [Suspect]
     Active Substance: PENICILLIN G
     Indication: INFECTION PROPHYLAXIS
     Dosage: UNK
     Route: 063
     Dates: end: 20190309
  3. GENTAMICIN SULFATE. [Suspect]
     Active Substance: GENTAMICIN SULFATE
     Indication: INFECTION PROPHYLAXIS
     Dosage: UNK
     Route: 063
     Dates: end: 20190309
  4. CLINDAMYCIN PHOSPHATE. [Suspect]
     Active Substance: CLINDAMYCIN PHOSPHATE
     Dosage: 600 MG, UNK (IV FOR 3 DOSES)
     Route: 063
     Dates: start: 20190307
  5. PARACETAMOL [Concomitant]
     Active Substance: ACETAMINOPHEN
     Dosage: UNK
     Route: 063
  6. IBUPROFEN. [Concomitant]
     Active Substance: IBUPROFEN
     Dosage: UNK
     Route: 063
  7. CLINDAMYCIN HCL [Suspect]
     Active Substance: CLINDAMYCIN HYDROCHLORIDE
     Indication: SEPSIS
     Dosage: 600 MG, UNK (ORAL FOR 2)
     Route: 063
     Dates: end: 20190309

REACTIONS (2)
  - Maternal exposure during breast feeding [Recovered/Resolved]
  - Diarrhoea neonatal [Recovered/Resolved]

NARRATIVE: CASE EVENT DATE: 20190308
